FAERS Safety Report 21178890 (Version 1)
Quarter: 2022Q3

REPORT INFORMATION
  Report Type: Spontaneous
  Country: US (occurrence: None)
  Receive Date: 20220804
  Receipt Date: 20220804
  Transmission Date: 20221026
  Serious: Yes (Other)
  Sender: FDA-Public Use
  Company Number: None

PATIENT
  Age: 59 Year
  Sex: Male

DRUGS (1)
  1. CAPECITABINE [Suspect]
     Active Substance: CAPECITABINE
     Route: 048

REACTIONS (7)
  - Proctalgia [None]
  - Insomnia [None]
  - Therapy interrupted [None]
  - Back pain [None]
  - Arthralgia [None]
  - Arthralgia [None]
  - Product dose omission in error [None]

NARRATIVE: CASE EVENT DATE: 20220804
